FAERS Safety Report 9224096 (Version 1)
Quarter: 2013Q1

REPORT INFORMATION
  Report Type: Spontaneous
  Country: US (occurrence: US)
  Receive Date: 20120914
  Receipt Date: 20120914
  Transmission Date: 20140127
  Serious: Yes (Other)
  Sender: FDA-Public Use
  Company Number: JPI-P-018306

PATIENT
  Age: 34 Year
  Sex: Female
  Weight: 97.52 kg

DRUGS (8)
  1. XYREM (500 MG/ML SOLUTION )(SODIUM OXYBATE) [Suspect]
     Indication: NARCOLEPSY
     Route: 048
     Dates: start: 20111112
  2. UNSPECIFIED ALLERGY SHOTS [Concomitant]
  3. ARMODAFINIL [Concomitant]
  4. OMEPRAZOLE [Concomitant]
  5. NAPROXEN [Concomitant]
  6. LORAZEPAM [Concomitant]
  7. MIRTAZAPINE [Concomitant]
  8. ONDANSETRON [Concomitant]

REACTIONS (1)
  - Hypertension [None]
